FAERS Safety Report 17029028 (Version 1)
Quarter: 2019Q4

REPORT INFORMATION
  Report Type: Spontaneous
  Country: FR (occurrence: FR)
  Receive Date: 20191114
  Receipt Date: 20191114
  Transmission Date: 20200122
  Serious: Yes (Hospitalization, Other)
  Sender: FDA-Public Use
  Company Number: FR-SA-2019SA312483

PATIENT
  Age: 62 Year
  Sex: Female
  Weight: 89 kg

DRUGS (4)
  1. METHOTREXATE. [Concomitant]
     Active Substance: METHOTREXATE
     Dosage: 25 MG, QW
  2. CERTOLIZUMAB [Concomitant]
     Active Substance: CERTOLIZUMAB
     Dosage: UNK
     Dates: start: 201507, end: 201810
  3. KEVZARA [Suspect]
     Active Substance: SARILUMAB
     Indication: RHEUMATOID ARTHRITIS
     Dosage: UNK
     Dates: start: 201810, end: 201902
  4. LEVOTHYROXINE SODIUM. [Suspect]
     Active Substance: LEVOTHYROXINE SODIUM

REACTIONS (14)
  - Overdose [Unknown]
  - Decreased appetite [Unknown]
  - Labyrinthitis [Unknown]
  - Vertigo [Unknown]
  - Hyperthyroidism [Unknown]
  - Thrombocytopenia [Unknown]
  - Cryoglobulinaemia [Unknown]
  - Weight decreased [Unknown]
  - Hepatosplenomegaly [Unknown]
  - Cytopenia [Unknown]
  - Leukopenia [Unknown]
  - Neutropenia [Unknown]
  - Asthenia [Unknown]
  - Deafness unilateral [Unknown]

NARRATIVE: CASE EVENT DATE: 201902
